FAERS Safety Report 5280144-5 (Version None)
Quarter: 2007Q1

REPORT INFORMATION
  Report Type: 
  Country: None (occurrence: None)
  Receive Date: 20070322
  Receipt Date: 20070309
  Transmission Date: 20070707
  Serious: Yes (Life-Threatening, Hospitalization)
  Sender: FDA-Public Use
  Company Number: 02100-EUR-07-0039

PATIENT
  Age: 82 Year
  Sex: Female

DRUGS (2)
  1. CILOSTAZOL [Suspect]
     Indication: PERIPHERAL ARTERIAL OCCLUSIVE DISEASE
     Dosage: 200 MG ORAL
     Route: 048
     Dates: start: 20070303, end: 20070309
  2. CALCIUM-CHANNEL BLOCKERS [Concomitant]

REACTIONS (10)
  - ASTHENIA [None]
  - BLOOD PRESSURE DECREASED [None]
  - CONDITION AGGRAVATED [None]
  - DISTURBANCE IN ATTENTION [None]
  - HEART RATE IRREGULAR [None]
  - MOVEMENT DISORDER [None]
  - MUSCLE TWITCHING [None]
  - RENAL FAILURE [None]
  - TACHYARRHYTHMIA [None]
  - TREMOR [None]
